FAERS Safety Report 24046235 (Version 1)
Quarter: 2024Q3

REPORT INFORMATION
  Report Type: Spontaneous
  Country: HU (occurrence: HU)
  Receive Date: 20240703
  Receipt Date: 20240703
  Transmission Date: 20241016
  Serious: Yes (Other)
  Sender: AMGEN
  Company Number: HU-AMGEN-HUNSP2024125090

PATIENT
  Age: 68 Year
  Sex: Male

DRUGS (1)
  1. ADALIMUMAB [Suspect]
     Active Substance: ADALIMUMAB\ISOPROPYL ALCOHOL
     Indication: Rheumatoid arthritis
     Dosage: 40 MILLIGRAM, Q2WK
     Route: 058
     Dates: start: 202204

REACTIONS (11)
  - Acquired haemophilia [Recovering/Resolving]
  - Circulatory collapse [Unknown]
  - Jejunal ulcer [Recovered/Resolved]
  - Syncope [Unknown]
  - Febrile neutropenia [Unknown]
  - Gastritis [Unknown]
  - Diverticulum [Unknown]
  - Large intestine polyp [Unknown]
  - Gastrointestinal polyp [Unknown]
  - Gastrointestinal angiodysplasia [Recovered/Resolved]
  - Klebsiella infection [Unknown]
